FAERS Safety Report 5136822-1 (Version None)
Quarter: 2006Q4

REPORT INFORMATION
  Report Type: 
  Country: None (occurrence: None)
  Receive Date: 20061013
  Receipt Date: 20061002
  Transmission Date: 20070319
  Serious: Yes (Other)
  Sender: FDA-Public Use
  Company Number: 200610295BBE

PATIENT
  Age: 58 Year
  Sex: Female

DRUGS (1)
  1. IMMUNE GLOBULIN INTRAVENOUS (HUMAN) [Suspect]
     Indication: ENCEPHALITIS

REACTIONS (4)
  - AGNOSIA [None]
  - ANAEMIA [None]
  - DEEP VEIN THROMBOSIS [None]
  - PARTIAL SEIZURES [None]
